FAERS Safety Report 6380471-4 (Version None)
Quarter: 2009Q3

REPORT INFORMATION
  Report Type: 
  Country: None (occurrence: None)
  Receive Date: 20090924
  Receipt Date: 20090909
  Transmission Date: 20100115
  Serious: Yes (Hospitalization)
  Sender: FDA-Public Use
  Company Number: ALA_00358_2009

PATIENT
  Age: 10 Month
  Sex: Male

DRUGS (1)
  1. MESALAZINE 4 G [Suspect]
     Indication: GASTROINTESTINAL INFLAMMATION
     Dosage: 4 G QD RECTAL
     Route: 054
     Dates: start: 20090901, end: 20090901

REACTIONS (3)
  - BLOOD BICARBONATE DECREASED [None]
  - HAEMOLYSIS [None]
  - METHAEMOGLOBINAEMIA [None]
